FAERS Safety Report 19030777 (Version 1)
Quarter: 2021Q1

REPORT INFORMATION
  Report Type: Spontaneous
  Country: US (occurrence: US)
  Receive Date: 20210319
  Receipt Date: 20210319
  Transmission Date: 20210420
  Serious: Yes (Hospitalization)
  Sender: FDA-Public Use
  Company Number: US-STRIDES ARCOLAB LIMITED-2021SP003285

PATIENT
  Age: 17 Year
  Sex: Male

DRUGS (1)
  1. ETHOSUXIMIDE. [Suspect]
     Active Substance: ETHOSUXIMIDE
     Indication: PRODUCT USED FOR UNKNOWN INDICATION
     Dosage: INTENTIONAL INGESTION OF 50 TO 60 TABLETS OF ETHOSUXIMIDE 250MG.
     Route: 048

REACTIONS (8)
  - Suicide attempt [Unknown]
  - Bradycardia [Recovered/Resolved]
  - Nausea [Recovered/Resolved]
  - Toxicity to various agents [Unknown]
  - Hypotension [Recovered/Resolved]
  - Intentional overdose [Unknown]
  - Depressed level of consciousness [Recovered/Resolved]
  - Vomiting [Recovered/Resolved]
